FAERS Safety Report 5469447-9 (Version None)
Quarter: 2007Q3

REPORT INFORMATION
  Report Type: 
  Country: None (occurrence: None)
  Receive Date: 20070925
  Receipt Date: 20070925
  Transmission Date: 20080115
  Serious: Yes (Hospitalization)
  Sender: FDA-Public Use
  Company Number: None

PATIENT
  Sex: Female
  Weight: 60 kg

DRUGS (1)
  1. TAXOL [Suspect]
     Dosage: 300 MG
     Dates: start: 20070910, end: 20070910

REACTIONS (1)
  - INTESTINAL OBSTRUCTION [None]
